FAERS Safety Report 7048572-5 (Version None)
Quarter: 2010Q4

REPORT INFORMATION
  Report Type: 
  Country: None (occurrence: None)
  Receive Date: 20101008
  Receipt Date: 20090907
  Transmission Date: 20110411
  Serious: Yes (Hospitalization)
  Sender: FDA-Public Use
  Company Number: 2009090481

PATIENT
  Age: 76 Year
  Sex: Female

DRUGS (4)
  1. PACLITAXEL [Suspect]
     Indication: NEOPLASM MALIGNANT
  2. TRASTUZUMAB (TRASTUZUMAB) (TRASTUZUMAB) [Concomitant]
  3. ATORVASTATIN (ATORVASTATIN) (ATORVASTATIN) [Concomitant]
  4. VITAMINS (VITAMINS) (VITAMINS) [Concomitant]

REACTIONS (2)
  - ACTIVATED PARTIAL THROMBOPLASTIN TIME PROLONGED [None]
  - HAEMATURIA [None]
